FAERS Safety Report 25916576 (Version 1)
Quarter: 2025Q4

REPORT INFORMATION
  Report Type: Spontaneous
  Country: GB (occurrence: GB)
  Receive Date: 20251014
  Receipt Date: 20251014
  Transmission Date: 20260117
  Serious: Yes (Other)
  Sender: ADVANZ PHARMA
  Company Number: None

PATIENT

DRUGS (1)
  1. PREDNISOLONE [Suspect]
     Active Substance: PREDNISOLONE
     Indication: Polymyalgia rheumatica
     Dosage: UNK (2.5 X 2 =5)
     Dates: end: 20250930

REACTIONS (6)
  - Nausea [Recovering/Resolving]
  - Dizziness [Not Recovered/Not Resolved]
  - Abdominal distension [Unknown]
  - Pollakiuria [Recovering/Resolving]
  - Faeces pale [Unknown]
  - Frequent bowel movements [Recovering/Resolving]
